FAERS Safety Report 8559286-4 (Version None)
Quarter: 2012Q3

REPORT INFORMATION
  Report Type: 
  Country: None (occurrence: None)
  Receive Date: 20120802
  Receipt Date: 20120730
  Transmission Date: 20120928
  Serious: Yes (Hospitalization, Other)
  Sender: FDA-Public Use
  Company Number: PHEH2012US014537

PATIENT
  Sex: Female
  Weight: 67.574 kg

DRUGS (4)
  1. EXJADE [Suspect]
     Indication: IRON OVERLOAD
     Dosage: 1250 MG, UNK
     Route: 048
     Dates: start: 20120514, end: 20120628
  2. NEXIUM [Concomitant]
     Indication: GASTROOESOPHAGEAL REFLUX DISEASE
     Dosage: 40 MG, UNK
     Route: 048
     Dates: start: 20070330
  3. EVISTA [Concomitant]
     Indication: BONE DISORDER
     Dosage: 60 MG, UNK
     Dates: start: 20070330
  4. EXCEDRIN (MIGRAINE) [Concomitant]
     Indication: PAIN
     Route: 048

REACTIONS (4)
  - FAECES DISCOLOURED [None]
  - COLITIS ULCERATIVE [None]
  - HAEMOGLOBIN DECREASED [None]
  - GASTROINTESTINAL MUCOSAL DISORDER [None]
